FAERS Safety Report 9311654 (Version 3)
Quarter: 2013Q3

REPORT INFORMATION
  Report Type: Spontaneous
  Country: US (occurrence: US)
  Receive Date: 20130528
  Receipt Date: 20130718
  Transmission Date: 20140515
  Serious: No
  Sender: FDA-Public Use
  Company Number: US-009507513-1305USA013687

PATIENT
  Sex: Female

DRUGS (1)
  1. IMPLANON [Suspect]
     Indication: CONTRACEPTION
     Dosage: 1 DF, 3 YEAR IMPLANT
     Route: 059
     Dates: start: 201104

REACTIONS (2)
  - Device breakage [Unknown]
  - No adverse event [Unknown]
